FAERS Safety Report 16766382 (Version 1)
Quarter: 2019Q4

REPORT INFORMATION
  Report Type: Spontaneous
  Country: US (occurrence: US)
  Receive Date: 20190831
  Receipt Date: 20190831
  Transmission Date: 20200122
  Serious: Yes (Life-Threatening, Other)
  Sender: FDA-Public Use
  Company Number: None

PATIENT
  Age: 68 Year
  Sex: Female

DRUGS (1)
  1. REFRESH OPTIVE MEGA-3 [Suspect]
     Active Substance: CARBOXYMETHYLCELLULOSE SODIUM\GLYCERIN\POLYSORBATE 80
     Indication: EYE LUBRICATION THERAPY
     Route: 047
     Dates: start: 20190820, end: 20190820

REACTIONS (5)
  - Product use complaint [None]
  - Instillation site reaction [None]
  - Eye pain [None]
  - Corneal abrasion [None]
  - Chemical burns of eye [None]

NARRATIVE: CASE EVENT DATE: 20190820
